FAERS Safety Report 7358452-3 (Version None)
Quarter: 2011Q1

REPORT INFORMATION
  Report Type: 
  Country: None (occurrence: None)
  Receive Date: 20110314
  Receipt Date: 20110314
  Transmission Date: 20110831
  Serious: Yes (Hospitalization, Other)
  Sender: FDA-Public Use
  Company Number: None

PATIENT
  Age: 68 Year
  Sex: Male
  Weight: 81.8 kg

DRUGS (1)
  1. LIPITOR [Suspect]
     Indication: BLOOD CHOLESTEROL
     Dosage: 10 MG DAILY ORAL    AT LEAST 9 YEARS
     Route: 048
     Dates: end: 20101201

REACTIONS (3)
  - CHROMATURIA [None]
  - URINE FLOW DECREASED [None]
  - DIARRHOEA [None]
